FAERS Safety Report 18394133 (Version 1)
Quarter: 2020Q4

REPORT INFORMATION
  Report Type: Spontaneous
  Country: CN (occurrence: CN)
  Receive Date: 20201016
  Receipt Date: 20201016
  Transmission Date: 20210114
  Serious: Yes (Other)
  Sender: FDA-Public Use
  Company Number: CN-ASTRAZENECA-2020SF33366

PATIENT
  Age: 12054 Day
  Sex: Male
  Weight: 60 kg

DRUGS (6)
  1. DEPAKINE (VALPROATE SODIUM) [Suspect]
     Active Substance: VALPROATE SODIUM
     Indication: MENTAL DISORDER
     Route: 048
     Dates: start: 20200727, end: 20200824
  2. LITHIUM CARBONATE. [Suspect]
     Active Substance: LITHIUM CARBONATE
     Indication: MENTAL DISORDER
     Route: 048
     Dates: start: 20200911, end: 20201009
  3. CHLORPROMAZINE. [Concomitant]
     Active Substance: CHLORPROMAZINE
  4. GLUTATHIONE [Concomitant]
     Active Substance: GLUTATHIONE
  5. SEROQUEL [Suspect]
     Active Substance: QUETIAPINE FUMARATE
     Indication: MENTAL DISORDER
     Route: 048
     Dates: start: 20200727, end: 20200826
  6. DEPAKINE (VALPROATE SODIUM) [Suspect]
     Active Substance: VALPROATE SODIUM
     Indication: AFFECTIVE DISORDER
     Route: 048
     Dates: start: 20200727, end: 20200824

REACTIONS (1)
  - Drug-induced liver injury [Recovering/Resolving]

NARRATIVE: CASE EVENT DATE: 20200918
